FAERS Safety Report 13899031 (Version 1)
Quarter: 2017Q3

REPORT INFORMATION
  Report Type: Spontaneous
  Country: US (occurrence: US)
  Receive Date: 20170823
  Receipt Date: 20170823
  Transmission Date: 20171127
  Serious: No
  Sender: FDA-Public Use
  Company Number: US-JAZZ-2017-US-007491

PATIENT
  Age: 39 Year
  Sex: Female

DRUGS (14)
  1. AMBIEN CR [Concomitant]
     Active Substance: ZOLPIDEM TARTRATE
  2. PROVIGIL [Concomitant]
     Active Substance: MODAFINIL
  3. CALTRATE                           /00944201/ [Concomitant]
     Active Substance: CALCIUM CARBONATE\CHOLECALCIFEROL
  4. NUVIGIL [Concomitant]
     Active Substance: ARMODAFINIL
  5. XYREM [Suspect]
     Active Substance: SODIUM OXYBATE
     Dosage: 4.5 G, BID
     Route: 048
     Dates: start: 201703
  6. NAPROXEN. [Concomitant]
     Active Substance: NAPROXEN
  7. METHYLPHENIDATE. [Concomitant]
     Active Substance: METHYLPHENIDATE
  8. TIZANIDINE. [Suspect]
     Active Substance: TIZANIDINE
     Indication: PRODUCT USED FOR UNKNOWN INDICATION
  9. XYREM [Suspect]
     Active Substance: SODIUM OXYBATE
     Dosage: DOSE ADJUSTMENTS
     Route: 048
     Dates: start: 201205, end: 201703
  10. PRENATAL                           /00231801/ [Concomitant]
     Active Substance: VITAMINS
  11. CETIRIZINE HCL [Concomitant]
     Active Substance: CETIRIZINE HYDROCHLORIDE
  12. XYREM [Suspect]
     Active Substance: SODIUM OXYBATE
     Indication: NARCOLEPSY
     Dosage: 3.5G, BID
     Route: 048
     Dates: start: 201204, end: 201205
  13. SINGULAIR [Concomitant]
     Active Substance: MONTELUKAST SODIUM
  14. IBUPROFEN. [Concomitant]
     Active Substance: IBUPROFEN

REACTIONS (5)
  - Feeling abnormal [Unknown]
  - Vomiting [Unknown]
  - Back injury [Unknown]
  - Diarrhoea [Unknown]
  - Dizziness [Unknown]

NARRATIVE: CASE EVENT DATE: 201706
